FAERS Safety Report 7810340-1 (Version None)
Quarter: 2011Q4

REPORT INFORMATION
  Report Type: 
  Country: None (occurrence: None)
  Receive Date: 20111012
  Receipt Date: 20110927
  Transmission Date: 20120403
  Serious: Yes (Death, Hospitalization)
  Sender: FDA-Public Use
  Company Number: GB-WATSON-2011-16060

PATIENT
  Sex: Female

DRUGS (3)
  1. CEFUROXIME [Suspect]
     Indication: SEPSIS
     Dosage: 1.5 G X 3 DOSES
     Route: 042
  2. ACETAMINOPHEN [Suspect]
     Indication: FEMORAL NECK FRACTURE
  3. FLOXACILLIN SODIUM [Suspect]
     Indication: SEPSIS
     Dosage: 2 G QID
     Route: 042

REACTIONS (2)
  - PYROGLUTAMATE INCREASED [None]
  - METABOLIC ACIDOSIS [None]
